FAERS Safety Report 18177792 (Version 8)
Quarter: 2022Q1

REPORT INFORMATION
  Report Type: Spontaneous
  Country: US (occurrence: US)
  Receive Date: 20200821
  Receipt Date: 20220125
  Transmission Date: 20220424
  Serious: Yes (Other)
  Sender: FDA-Public Use
  Company Number: NVSC2020US230291

PATIENT
  Age: 41 Year
  Sex: Female

DRUGS (1)
  1. MAYZENT [Suspect]
     Active Substance: SIPONIMOD
     Indication: Product used for unknown indication
     Dosage: UNK
     Route: 065

REACTIONS (16)
  - Optic neuritis [Unknown]
  - Glaucoma [Unknown]
  - Memory impairment [Unknown]
  - Hypoaesthesia [Unknown]
  - COVID-19 [Unknown]
  - Cough [Unknown]
  - Dyspnoea [Unknown]
  - Pain [Unknown]
  - Dyspnoea exertional [Unknown]
  - Respiratory symptom [Not Recovered/Not Resolved]
  - Nasopharyngitis [Unknown]
  - Fatigue [Unknown]
  - Headache [Not Recovered/Not Resolved]
  - Dizziness [Not Recovered/Not Resolved]
  - Oropharyngeal pain [Unknown]
  - Diarrhoea [Unknown]

NARRATIVE: CASE EVENT DATE: 20211001
